FAERS Safety Report 6829069-1 (Version None)
Quarter: 2010Q3

REPORT INFORMATION
  Report Type: 
  Country: None (occurrence: None)
  Receive Date: 20100709
  Receipt Date: 20070227
  Transmission Date: 20110219
  Serious: No
  Sender: FDA-Public Use
  Company Number: US-PFIZER INC-2007016545

PATIENT
  Sex: Female
  Weight: 63.05 kg

DRUGS (4)
  1. CHANTIX [Suspect]
     Indication: EX-TOBACCO USER
     Dates: start: 20070201
  2. EFFEXOR [Concomitant]
  3. MUCINEX [Concomitant]
  4. KEFLEX [Concomitant]

REACTIONS (2)
  - FATIGUE [None]
  - NAUSEA [None]
